FAERS Safety Report 5137574-1 (Version None)
Quarter: 2006Q4

REPORT INFORMATION
  Report Type: 
  Country: None (occurrence: None)
  Receive Date: 20061030
  Receipt Date: 20051121
  Transmission Date: 20070319
  Serious: No
  Sender: FDA-Public Use
  Company Number: US-GLAXOSMITHKLINE-A0583472A

PATIENT
  Age: 42 Year
  Sex: Male

DRUGS (13)
  1. ADVAIR HFA [Suspect]
     Indication: ASTHMA
     Dosage: 1BLS TWICE PER DAY
     Route: 055
     Dates: start: 20040101
  2. NAPROXEN [Concomitant]
  3. TIAZAC [Concomitant]
  4. UNKNOWN MEDICATION [Concomitant]
  5. ATIVAN [Concomitant]
  6. ASPIRIN [Concomitant]
  7. AMBIEN [Concomitant]
  8. TYLENOL ES [Concomitant]
  9. VENTOLIN [Concomitant]
  10. MULTI-VITAMIN [Concomitant]
  11. FLONASE [Concomitant]
  12. SINGULAIR [Concomitant]
  13. HYDROCHLOROTHIAZIDE [Concomitant]

REACTIONS (2)
  - DIARRHOEA [None]
  - HAEMORRHOIDS [None]
